FAERS Safety Report 23227373 (Version 1)
Quarter: 2023Q4

REPORT INFORMATION
  Report Type: Spontaneous
  Country: CH (occurrence: CH)
  Receive Date: 20231124
  Receipt Date: 20231124
  Transmission Date: 20240109
  Serious: Yes (Hospitalization)
  Sender: FDA-Public Use
  Company Number: None

PATIENT
  Age: 0 Year

DRUGS (16)
  1. PROZAC [Suspect]
     Active Substance: FLUOXETINE HYDROCHLORIDE
     Indication: Schizoaffective disorder bipolar type
     Dosage: 40 MG, DAILY
     Route: 064
  2. PROZAC [Suspect]
     Active Substance: FLUOXETINE HYDROCHLORIDE
     Indication: Schizoaffective disorder bipolar type
     Dosage: 40 MG, DAILY
     Route: 064
  3. QUETIAPINE [Concomitant]
     Active Substance: QUETIAPINE
     Indication: Schizoaffective disorder bipolar type
     Dosage: UNK, UNKNOWN
     Route: 065
  4. QUETIAPINE [Concomitant]
     Active Substance: QUETIAPINE
     Indication: Schizoaffective disorder bipolar type
     Dosage: UNK, UNKNOWN
     Route: 065
  5. TRAZODONE HYDROCHLORIDE [Concomitant]
     Active Substance: TRAZODONE HYDROCHLORIDE
     Indication: Schizoaffective disorder bipolar type
     Dosage: UNK, UNKNOWN
     Route: 065
  6. TRAZODONE HYDROCHLORIDE [Concomitant]
     Active Substance: TRAZODONE HYDROCHLORIDE
     Indication: Schizoaffective disorder bipolar type
     Dosage: UNK, UNKNOWN
     Route: 065
  7. HALDOL [Concomitant]
     Active Substance: HALOPERIDOL
     Indication: Schizoaffective disorder bipolar type
     Dosage: UNK, UNKNOWN
     Route: 065
  8. HALDOL [Concomitant]
     Active Substance: HALOPERIDOL
     Indication: Schizoaffective disorder bipolar type
     Dosage: UNK, UNKNOWN
     Route: 065
  9. XANAX [Concomitant]
     Active Substance: ALPRAZOLAM
     Indication: Schizoaffective disorder bipolar type
     Dosage: UNK, UNKNOWN
     Route: 065
  10. XANAX [Concomitant]
     Active Substance: ALPRAZOLAM
     Indication: Schizoaffective disorder bipolar type
     Dosage: UNK, UNKNOWN
     Route: 065
  11. LISDEXAMFETAMINE DIMESYLATE [Concomitant]
     Active Substance: LISDEXAMFETAMINE DIMESYLATE
     Indication: Schizoaffective disorder bipolar type
     Dosage: UNK, UNKNOWN
     Route: 065
  12. LISDEXAMFETAMINE DIMESYLATE [Concomitant]
     Active Substance: LISDEXAMFETAMINE DIMESYLATE
     Indication: Schizoaffective disorder bipolar type
     Dosage: UNK, UNKNOWN
     Route: 065
  13. HYDROCHLOROTHIAZIDE [Concomitant]
     Active Substance: HYDROCHLOROTHIAZIDE
     Indication: Schizoaffective disorder bipolar type
     Dosage: UNK, UNKNOWN
     Route: 065
  14. HYDROCHLOROTHIAZIDE [Concomitant]
     Active Substance: HYDROCHLOROTHIAZIDE
     Indication: Schizoaffective disorder bipolar type
     Dosage: UNK, UNKNOWN
     Route: 065
  15. OXAZEPAM [Concomitant]
     Active Substance: OXAZEPAM
     Indication: Schizoaffective disorder bipolar type
     Dosage: UNK UNK, UNKNOWN
     Route: 065
  16. OXAZEPAM [Concomitant]
     Active Substance: OXAZEPAM
     Indication: Schizoaffective disorder bipolar type
     Dosage: UNK UNK, UNKNOWN
     Route: 065

REACTIONS (4)
  - Foetal exposure during pregnancy [Recovered/Resolved]
  - Drug withdrawal syndrome neonatal [Not Recovered/Not Resolved]
  - Agitation [Not Recovered/Not Resolved]
  - Hypervigilance [Not Recovered/Not Resolved]

NARRATIVE: CASE EVENT DATE: 20220901
